FAERS Safety Report 5464174-6 (Version None)
Quarter: 2007Q3

REPORT INFORMATION
  Report Type: 
  Country: None (occurrence: None)
  Receive Date: 20070921
  Receipt Date: 20070917
  Transmission Date: 20080115
  Serious: Yes (Other)
  Sender: FDA-Public Use
  Company Number: US-GENENTECH-247946

PATIENT
  Age: 62 Year
  Sex: Male

DRUGS (1)
  1. RAPTIVA [Suspect]
     Indication: DRUG USE FOR UNKNOWN INDICATION
     Dates: start: 20060901, end: 20070901

REACTIONS (2)
  - MENTAL STATUS CHANGES [None]
  - NEUROLOGICAL SYMPTOM [None]
